FAERS Safety Report 17542488 (Version 1)
Quarter: 2020Q1

REPORT INFORMATION
  Report Type: Report from Study
  Country: None (occurrence: GR)
  Receive Date: 20200314
  Receipt Date: 20200314
  Transmission Date: 20200409
  Serious: Yes (Death)
  Sender: FDA-Public Use
  Company Number: GR-ABBVIE-20K-066-3317934-00

PATIENT
  Sex: Male
  Weight: 82 kg

DRUGS (4)
  1. REMINYL [Concomitant]
     Active Substance: GALANTAMINE
     Indication: DEPRESSION
     Route: 048
     Dates: start: 201709
  2. SYMMETREL [Concomitant]
     Active Substance: AMANTADINE HYDROCHLORIDE
     Indication: FALL
     Route: 048
     Dates: start: 201709
  3. STELMINAL [Concomitant]
     Indication: DEPRESSION
     Route: 048
  4. DUODOPA [Suspect]
     Active Substance: CARBIDOPA\LEVODOPA
     Indication: PARKINSON^S DISEASE
     Dosage: MORNING DOSE: 10.1ML; CONTINUOUS RATE: 2.8ML/H; EXTRA DOSE: 1ML
     Route: 050
     Dates: start: 20170801

REACTIONS (2)
  - Pneumonia aspiration [Fatal]
  - Dyspnoea [Unknown]
